FAERS Safety Report 4990015-7 (Version None)
Quarter: 2006Q2

REPORT INFORMATION
  Report Type: 
  Country: None (occurrence: None)
  Receive Date: 20060427
  Receipt Date: 20060417
  Transmission Date: 20061013
  Serious: Yes (Hospitalization, Other)
  Sender: FDA-Public Use
  Company Number: 200513989GDS

PATIENT
  Age: 71 Year
  Sex: Female
  Weight: 101 kg

DRUGS (13)
  1. CIPRO [Suspect]
     Indication: POSTOPERATIVE INFECTION
     Dosage: 1500 MG, TOTAL DAILY, ORAL
     Route: 048
     Dates: start: 20050615, end: 20050709
  2. CIPRO [Suspect]
     Indication: SEPSIS
     Dosage: 1500 MG, TOTAL DAILY, ORAL
     Route: 048
     Dates: start: 20050615, end: 20050709
  3. TAZOCIN [Suspect]
     Indication: POSTOPERATIVE INFECTION
     Dosage: 13.5 G, TOTAL DAILY, INTRAVENOUS
     Route: 042
     Dates: start: 20050615, end: 20050709
  4. TAZOCIN [Suspect]
     Indication: SEPSIS
     Dosage: 13.5 G, TOTAL DAILY, INTRAVENOUS
     Route: 042
     Dates: start: 20050615, end: 20050709
  5. ASPIRIN [Concomitant]
  6. COUMADIN [Concomitant]
  7. COVERSYL (PERINDOPRIL ERBUMINE) [Concomitant]
  8. FRAGMIN [Concomitant]
  9. INSULIN [Concomitant]
  10. LASIX [Concomitant]
  11. NORVASC [Concomitant]
  12. PANTOPRAZOLE SODIUM [Concomitant]
  13. SYNTHROID [Concomitant]

REACTIONS (5)
  - BLOOD CREATININE INCREASED [None]
  - LICHENOID KERATOSIS [None]
  - PRURITUS [None]
  - RASH [None]
  - STEVENS-JOHNSON SYNDROME [None]
